FAERS Safety Report 24654892 (Version 1)
Quarter: 2024Q4

REPORT INFORMATION
  Report Type: Report from Study
  Country: US (occurrence: US)
  Receive Date: 20241122
  Receipt Date: 20241122
  Transmission Date: 20250115
  Serious: Yes (Other)
  Sender: ALEXION PHARMACEUTICALS
  Company Number: US-AstraZeneca-CH-00709229A

PATIENT

DRUGS (4)
  1. BENRALIZUMAB [Suspect]
     Active Substance: BENRALIZUMAB
     Dosage: UNK
  2. BENRALIZUMAB [Suspect]
     Active Substance: BENRALIZUMAB
     Dosage: UNK
  3. BENRALIZUMAB [Suspect]
     Active Substance: BENRALIZUMAB
     Dosage: UNK
  4. BENRALIZUMAB [Suspect]
     Active Substance: BENRALIZUMAB
     Dosage: UNK

REACTIONS (16)
  - Gait disturbance [Unknown]
  - Malaise [Unknown]
  - Housebound [Unknown]
  - Angina pectoris [Unknown]
  - Renal cancer [Unknown]
  - Vomiting [Unknown]
  - Nausea [Unknown]
  - Blood glucose increased [Unknown]
  - Diabetes mellitus [Unknown]
  - Pain in extremity [Unknown]
  - Arthralgia [Unknown]
  - Neck pain [Unknown]
  - Back pain [Unknown]
  - Joint injury [Unknown]
  - Pain in extremity [Unknown]
  - Pain [Unknown]
